FAERS Safety Report 14576643 (Version 1)
Quarter: 2018Q1

REPORT INFORMATION
  Report Type: Spontaneous
  Country: US (occurrence: US)
  Receive Date: 20180224
  Receipt Date: 20180224
  Transmission Date: 20180509
  Serious: No
  Sender: FDA-Public Use
  Company Number: None

PATIENT
  Age: 64 Year
  Sex: Male

DRUGS (1)
  1. REVLIMID [Suspect]
     Active Substance: LENALIDOMIDE
     Indication: PLASMA CELL MYELOMA
     Route: 048
     Dates: start: 20180129

REACTIONS (5)
  - Epistaxis [None]
  - Thrombocytopenia [None]
  - Rash [None]
  - Pruritus [None]
  - Anaemia [None]

NARRATIVE: CASE EVENT DATE: 20180209
